FAERS Safety Report 6850361-9 (Version None)
Quarter: 2010Q3

REPORT INFORMATION
  Report Type: 
  Country: None (occurrence: None)
  Receive Date: 20100716
  Receipt Date: 20071109
  Transmission Date: 20110219
  Serious: No
  Sender: FDA-Public Use
  Company Number: US-PFIZER INC-2007087452

PATIENT
  Sex: Male
  Weight: 77.272 kg

DRUGS (3)
  1. CHANTIX [Suspect]
     Indication: SMOKING CESSATION THERAPY
     Dates: start: 20071013, end: 20071013
  2. ATENOLOL [Concomitant]
  3. ANTIHYPERTENSIVES [Concomitant]

REACTIONS (7)
  - APPETITE DISORDER [None]
  - GAIT DISTURBANCE [None]
  - HEADACHE [None]
  - NERVOUSNESS [None]
  - PARAESTHESIA [None]
  - PSYCHOMOTOR HYPERACTIVITY [None]
  - TOOTHACHE [None]
